FAERS Safety Report 18041183 (Version 5)
Quarter: 2021Q2

REPORT INFORMATION
  Report Type: Spontaneous
  Country: US (occurrence: US)
  Receive Date: 20200719
  Receipt Date: 20210410
  Transmission Date: 20210717
  Serious: Yes (Hospitalization, Other)
  Sender: FDA-Public Use
  Company Number: US-B.I. PHARMACEUTICALS,INC./RIDGEFIELD-2020-BI-035235

PATIENT
  Age: 46 Year
  Sex: Male
  Weight: 122.6 kg

DRUGS (24)
  1. ALBUTEROL [SALBUTAMOL] [Concomitant]
     Active Substance: ALBUTEROL
     Indication: PRODUCT USED FOR UNKNOWN INDICATION
     Dosage: 90 MCG/INH INHALATION AEROSOL + DOSE RANGE, 2 PUFF(S), INH, Q4HR, PRN
     Route: 055
  2. ATORVASTATIN [Concomitant]
     Active Substance: ATORVASTATIN
     Indication: PRODUCT USED FOR UNKNOWN INDICATION
     Dosage: 80 MG ORAL TABLET, 80MG=1 TAB(S), ORAL, QHS
     Route: 048
  3. FISH OIL [COD?LIVER OIL] [Concomitant]
     Indication: PRODUCT USED FOR UNKNOWN INDICATION
     Dosage: 1 CAPSULE, ORAL, QAM
     Route: 048
  4. SIMETHICONE (DIMETHICONE) [Concomitant]
     Active Substance: DIMETHICONE
     Indication: PRODUCT USED FOR UNKNOWN INDICATION
     Dosage: 80 MG ORAL TABLET, CHEWABLE, 80 MG = 1 TAB(S), CHEWED, QID
     Route: 048
  5. VENTOLIN HFA [Concomitant]
     Active Substance: ALBUTEROL SULFATE
     Indication: PRODUCT USED FOR UNKNOWN INDICATION
     Dosage: 90MCG/INH INHALATION AEROSOL, 2 PUFF(S), INH, QID
     Route: 055
  6. BASAGLAR [Concomitant]
     Active Substance: INSULIN GLARGINE
     Indication: PRODUCT USED FOR UNKNOWN INDICATION
     Dosage: 100 UNITS/ML SUBCUTANEOUS SOLUTION, 45 UNIT(S), SUBCUTANEOUS, QHS
     Route: 058
  7. FLONASE [MOMETASONE FUROATE] [Concomitant]
     Active Substance: MOMETASONE FUROATE
     Indication: PRODUCT USED FOR UNKNOWN INDICATION
     Dosage: 50MCG/INH NASAL SPRAY, 2 SPRAY(S), NASAL, QAM
     Route: 045
  8. METOPROLOL SUCCINATE. [Concomitant]
     Active Substance: METOPROLOL SUCCINATE
     Indication: PRODUCT USED FOR UNKNOWN INDICATION
     Dosage: 50 MG ORAL TABLET, EXTENDED RELEASE, 50MG=1 TAB(S), ORAL, QAM
     Route: 048
  9. MIRALAX [Concomitant]
     Active Substance: POLYETHYLENE GLYCOL 3350
     Indication: PRODUCT USED FOR UNKNOWN INDICATION
     Dosage: POWDER FOR RECONSTITUTION, 17 GM, ORAL, DAILY, PRN
     Route: 048
  10. JARDIANCE [Suspect]
     Active Substance: EMPAGLIFLOZIN
     Indication: TYPE 2 DIABETES MELLITUS
     Dosage: QAM, 10MG A DAY , 10 MG ORAL TABLET, 10 MG=1 TAB(S),  ORAL, QAM
     Route: 048
     Dates: start: 20170425
  11. EPIPEN [Concomitant]
     Active Substance: EPINEPHRINE
     Indication: PRODUCT USED FOR UNKNOWN INDICATION
     Dosage: 0.3 MG, IM, ONCE
     Route: 030
  12. INSULIN GLULISINE [Concomitant]
     Active Substance: INSULIN GLULISINE
     Indication: PRODUCT USED FOR UNKNOWN INDICATION
     Dosage: 10 UNIT(S), SUBCUTANEOUS, TIDAC
     Route: 058
  13. PEPCID [Concomitant]
     Active Substance: FAMOTIDINE
     Indication: PRODUCT USED FOR UNKNOWN INDICATION
     Dosage: 20 MG ORAL TABLET, 20 MG = 1 TAB(S), ORAL, BID
     Route: 048
  14. UMECLIDINIUM;VILANTEROL [Concomitant]
     Active Substance: UMECLIDINIUM BROMIDE\VILANTEROL TRIFENATATE
     Indication: PRODUCT USED FOR UNKNOWN INDICATION
     Dosage: 62.5MCG?25MCG/INH INHALATION POWDER, 1 PUFF(S), INH, DAILY
     Route: 055
  15. ASCORBIC ACID. [Concomitant]
     Active Substance: ASCORBIC ACID
     Indication: PRODUCT USED FOR UNKNOWN INDICATION
     Dosage: 100 MG ORAL TABLET, 1 TAB(S), ORAL, DAILY
     Route: 048
  16. ASPIRIN [ACETYLSALICYLIC ACID] [Concomitant]
     Active Substance: ASPIRIN
     Indication: PRODUCT USED FOR UNKNOWN INDICATION
     Dosage: 81 MG ORAL TABLET, 81MG=1 TAB(S), ORAL, DAILY
     Route: 048
  17. INSULIN LISPRO [Concomitant]
     Active Substance: INSULIN LISPRO
     Indication: PRODUCT USED FOR UNKNOWN INDICATION
     Dosage: 100 UNITS/ML INJECTABLE SOLUTION, 10 UNIT(S)=0.1ML, SUBCUTANEOUS , TIDML
     Route: 058
  18. OXYCODONE [Concomitant]
     Active Substance: OXYCODONE
     Indication: PRODUCT USED FOR UNKNOWN INDICATION
     Dosage: 5 MG ORAL TABLET, 10 MG=2 TAB(S), ORAL, Q4HR, PRN
     Route: 048
  19. AZELASTINE. [Concomitant]
     Active Substance: AZELASTINE HYDROCHLORIDE
     Indication: PRODUCT USED FOR UNKNOWN INDICATION
     Dosage: 0.1% (137 MCG/INH) SPRAY, 2 SPRAY(S), NASAL, BID
     Route: 045
  20. FLAGYL [Concomitant]
     Active Substance: METRONIDAZOLE\METRONIDAZOLE HYDROCHLORIDE
     Indication: PRODUCT USED FOR UNKNOWN INDICATION
     Dosage: 250MG ORAL TABLET, 500 MG=2 TAB(S), ORAL, TID 8
     Route: 048
  21. GABAPENTIN. [Concomitant]
     Active Substance: GABAPENTIN
     Indication: PRODUCT USED FOR UNKNOWN INDICATION
     Dosage: 800 MG ORAL TABLET, 800MG=1 TAB(S), ORAL, TID
     Route: 048
  22. LEVAQUIN [Concomitant]
     Active Substance: LEVOFLOXACIN
     Indication: PRODUCT USED FOR UNKNOWN INDICATION
     Dosage: 500 MG ORAL TABLET, 500MG=1 TAB(S), ORAL, DAILY
     Route: 048
  23. FLOMAX [MORNIFLUMATE] [Concomitant]
     Active Substance: MORNIFLUMATE
     Indication: PRODUCT USED FOR UNKNOWN INDICATION
     Dosage: 0.4 MG ORAL CAPSULE (0.4MG=1 CAP(S), ORAL PCBK
     Route: 048
  24. NITROSTAT [Concomitant]
     Active Substance: NITROGLYCERIN
     Indication: PRODUCT USED FOR UNKNOWN INDICATION
     Dosage: 0.4 MG=1 TAB(S), SL, Q5MIN, PRN
     Route: 048

REACTIONS (3)
  - Acute kidney injury [Unknown]
  - Fournier^s gangrene [Recovering/Resolving]
  - Sepsis [Unknown]

NARRATIVE: CASE EVENT DATE: 20180513
